FAERS Safety Report 5707233-2 (Version None)
Quarter: 2008Q2

REPORT INFORMATION
  Report Type: 
  Country: None (occurrence: None)
  Receive Date: 20080416
  Receipt Date: 20080415
  Transmission Date: 20081010
  Serious: Yes (Other)
  Sender: FDA-Public Use
  Company Number: US-KINGPHARMUSA00001-K200800367

PATIENT

DRUGS (6)
  1. ALTACE [Suspect]
     Dosage: 2.5 MG, QD
     Route: 048
     Dates: start: 20071207, end: 20071208
  2. FRUSEMIDE /00032601/ [Concomitant]
     Dosage: 40 MG, UNK
     Route: 048
  3. SINGULAIR [Concomitant]
     Indication: ASTHMA
     Dosage: 10 MG, UNK
     Route: 048
  4. UNIPHYL [Concomitant]
     Route: 048
  5. SERETIDE DISKUS 500 /01420901/ [Concomitant]
     Dosage: 500 MG, UNK
     Route: 065
  6. VENTOLIN [Concomitant]
     Dosage: UNK, UNK
     Route: 065

REACTIONS (1)
  - HYPOAESTHESIA [None]
